FAERS Safety Report 5073189-1 (Version None)
Quarter: 2006Q3

REPORT INFORMATION
  Report Type: 
  Country: None (occurrence: None)
  Receive Date: 20060711
  Receipt Date: 20060321
  Transmission Date: 20061208
  Serious: No
  Sender: FDA-Public Use
  Company Number: 2006S1000061

PATIENT
  Age: 40 Year
  Sex: Male

DRUGS (3)
  1. CUBICIN [Suspect]
     Indication: ENDOCARDITIS
     Dosage: 6 MG/KG; Q24H; IV
     Route: 042
     Dates: start: 20060301
  2. GENTAMICIN [Concomitant]
  3. RIFAMPIN [Concomitant]

REACTIONS (1)
  - RENAL FAILURE [None]
